FAERS Safety Report 20946236 (Version 1)
Quarter: 2022Q2

REPORT INFORMATION
  Report Type: Spontaneous
  Country: CN (occurrence: None)
  Receive Date: 20220610
  Receipt Date: 20220610
  Transmission Date: 20220721
  Serious: Yes (Other)
  Sender: FDA-Public Use
  Company Number: 2022A211332

PATIENT
  Age: 24611 Day
  Sex: Male
  Weight: 43.5 kg

DRUGS (3)
  1. BUDESONIDE [Suspect]
     Active Substance: BUDESONIDE
     Indication: Bronchiectasis
     Route: 055
     Dates: start: 20220517, end: 20220527
  2. SODIUM BICARBONATE [Concomitant]
     Active Substance: SODIUM BICARBONATE
     Route: 065
  3. FLUCONAZOLE [Concomitant]
     Active Substance: FLUCONAZOLE
     Route: 048

REACTIONS (1)
  - Leukoderma [Recovering/Resolving]

NARRATIVE: CASE EVENT DATE: 20220521
